FAERS Safety Report 24907865 (Version 1)
Quarter: 2025Q1

REPORT INFORMATION
  Report Type: Report from Study
  Country: US (occurrence: US)
  Receive Date: 20250131
  Receipt Date: 20250131
  Transmission Date: 20250408
  Serious: Yes (Other)
  Sender: ROCHE
  Company Number: US-ROCHE-10000190235

PATIENT
  Age: 24 Year
  Sex: Male

DRUGS (1)
  1. ALECENSA [Suspect]
     Active Substance: ALECTINIB HYDROCHLORIDE
     Indication: Anaplastic large cell lymphoma T- and null-cell types
     Dosage: TAKE 4 CAPSULES BY MOUTH TWICE A DAY
     Route: 048

REACTIONS (4)
  - T-cell lymphoma [Unknown]
  - Hypertension [Unknown]
  - Benign prostatic hyperplasia [Unknown]
  - Leukaemia [Unknown]
